FAERS Safety Report 8559460-7 (Version None)
Quarter: 2012Q3

REPORT INFORMATION
  Report Type: 
  Country: None (occurrence: None)
  Receive Date: 20120802
  Receipt Date: 20120731
  Transmission Date: 20120928
  Serious: Yes (Hospitalization)
  Sender: FDA-Public Use
  Company Number: US-AMGEN-USASP2012045390

PATIENT
  Age: 87 Year
  Sex: Female
  Weight: 55.782 kg

DRUGS (6)
  1. NAPROXEN (ALEVE) [Concomitant]
     Indication: PAIN
     Dosage: 220 MG, PRN
     Route: 048
  2. ASPIRIN [Concomitant]
     Dosage: 81 MG, UNK
     Route: 048
  3. PROLIA [Suspect]
     Indication: PRODUCT USED FOR UNKNOWN INDICATION
     Dosage: 60 MG, Q6MO
     Route: 058
     Dates: start: 20120706, end: 20120717
  4. NAMENDA [Concomitant]
     Dosage: 10 MG, BID
     Route: 048
  5. CALCIUM D                          /00944201/ [Concomitant]
     Dosage: UNK UNK, BID
     Route: 048
  6. VITAMIN B12                        /00056201/ [Concomitant]
     Route: 048

REACTIONS (3)
  - CHEST PAIN [None]
  - URINARY TRACT INFECTION [None]
  - ADVERSE REACTION [None]
